FAERS Safety Report 6336932-7 (Version None)
Quarter: 2009Q3

REPORT INFORMATION
  Report Type: 
  Country: None (occurrence: None)
  Receive Date: 20090901
  Receipt Date: 20090827
  Transmission Date: 20100115
  Serious: Yes (Other)
  Sender: FDA-Public Use
  Company Number: US-GENENTECH-287479

PATIENT
  Sex: Female

DRUGS (8)
  1. LUCENTIS [Suspect]
     Indication: MACULAR DEGENERATION
     Dosage: UNK
     Route: 031
     Dates: start: 20090720
  2. AVASTIN [Suspect]
     Indication: DRUG USE FOR UNKNOWN INDICATION
     Dosage: UNK
     Route: 031
     Dates: start: 20090101
  3. AVASTIN [Suspect]
     Dosage: UNK
     Route: 031
     Dates: start: 20090201
  4. AVASTIN [Suspect]
     Dosage: UNK
     Route: 031
     Dates: start: 20090401
  5. TIMOLOL [Concomitant]
     Indication: DRUG USE FOR UNKNOWN INDICATION
  6. LEVOTHYROXINE SODIUM [Concomitant]
     Indication: DRUG USE FOR UNKNOWN INDICATION
  7. ANTIHISTAMINE (UNK INGREDIENTS) [Concomitant]
     Indication: DRUG USE FOR UNKNOWN INDICATION
  8. PRESSURE BANDAGES [Concomitant]
     Indication: DRUG USE FOR UNKNOWN INDICATION

REACTIONS (7)
  - DRY MOUTH [None]
  - HEADACHE [None]
  - LACRIMATION INCREASED [None]
  - OCULAR HYPERAEMIA [None]
  - SENSATION OF FOREIGN BODY [None]
  - SINUS HEADACHE [None]
  - VISUAL IMPAIRMENT [None]
